FAERS Safety Report 6182656-9 (Version None)
Quarter: 2009Q2

REPORT INFORMATION
  Report Type: 
  Country: None (occurrence: None)
  Receive Date: 20090507
  Receipt Date: 20090430
  Transmission Date: 20091009
  Serious: Yes (Death, Hospitalization)
  Sender: FDA-Public Use
  Company Number: A0752304A

PATIENT
  Age: 41 Year
  Sex: Male
  Weight: 109.1 kg

DRUGS (12)
  1. ADVAIR HFA [Suspect]
     Indication: ASTHMA
     Dosage: 1PUFF TWICE PER DAY
     Route: 055
  2. SEREVENT [Suspect]
     Indication: ASTHMA
     Route: 055
  3. XOPENEX [Concomitant]
  4. LISINOPRIL [Concomitant]
  5. PROVENTIL [Concomitant]
  6. FLONASE [Concomitant]
  7. ATROVENT [Concomitant]
  8. ALBUTEROL [Concomitant]
  9. PREDNISONE TAB [Concomitant]
  10. ALLEGRA [Concomitant]
  11. LOTENSIN [Concomitant]
     Dates: start: 20020207
  12. FLOVENT [Concomitant]

REACTIONS (11)
  - ANOXIC ENCEPHALOPATHY [None]
  - ASTHMA [None]
  - BRAIN DEATH [None]
  - BRAIN OEDEMA [None]
  - HYPOKALAEMIA [None]
  - OBESITY [None]
  - PNEUMONIA [None]
  - RESPIRATORY ACIDOSIS [None]
  - RESPIRATORY ARREST [None]
  - STATUS ASTHMATICUS [None]
  - TREATMENT NONCOMPLIANCE [None]
